FAERS Safety Report 6069018-X (Version None)
Quarter: 2009Q1

REPORT INFORMATION
  Report Type: 
  Country: None (occurrence: None)
  Receive Date: 20090206
  Receipt Date: 20090129
  Transmission Date: 20090719
  Serious: Yes (Hospitalization)
  Sender: FDA-Public Use
  Company Number: US-ELI_LILLY_AND_COMPANY-US200901005488

PATIENT
  Sex: Female
  Weight: 93.424 kg

DRUGS (4)
  1. BYETTA [Suspect]
     Indication: TYPE 2 DIABETES MELLITUS
     Dosage: 5 UG, 2/D
     Route: 058
     Dates: start: 20050101, end: 20050101
  2. BYETTA [Suspect]
     Dosage: 10 UG, 2/D
     Route: 058
     Dates: start: 20050101, end: 20070101
  3. BYETTA [Suspect]
     Dosage: 5 UG, 2/D
     Route: 058
     Dates: start: 20081201
  4. ANTI-DIABETICS [Concomitant]
     Indication: TYPE 2 DIABETES MELLITUS
     Route: 048
     Dates: end: 20070101

REACTIONS (7)
  - BLOOD GLUCOSE INCREASED [None]
  - COMPLEX REGIONAL PAIN SYNDROME [None]
  - FALL [None]
  - HYPOVITAMINOSIS [None]
  - INJECTION SITE PAPULE [None]
  - MYALGIA [None]
  - NAUSEA [None]
